FAERS Safety Report 5325338-5 (Version None)
Quarter: 2007Q2

REPORT INFORMATION
  Report Type: 
  Country: None (occurrence: None)
  Receive Date: 20070509
  Receipt Date: 20070423
  Transmission Date: 20071010
  Serious: Yes (Other)
  Sender: FDA-Public Use
  Company Number: 2007RR-07052

PATIENT
  Age: 87 Year
  Sex: Male

DRUGS (5)
  1. CODEINE PHOSPHATE(CODEINE) UNKNOWN [Suspect]
     Indication: HALLUCINATION
     Dosage: 3 DF, ORAL
     Route: 048
     Dates: start: 20060101
  2. EXIBA(EXIBA) [Suspect]
     Indication: DEMENTIA
     Dosage: 10 MG, BID, ORAL
     Route: 048
     Dates: start: 20070111, end: 20070319
  3. ASPIRIN [Concomitant]
  4. GTN-S [Concomitant]
  5. MIRTAZAPINE [Concomitant]

REACTIONS (4)
  - AGITATION [None]
  - CONFUSIONAL STATE [None]
  - FATIGUE [None]
  - TREMOR [None]
